FAERS Safety Report 8012674-7 (Version None)
Quarter: 2011Q4

REPORT INFORMATION
  Report Type: 
  Country: None (occurrence: None)
  Receive Date: 20111229
  Receipt Date: 20111113
  Transmission Date: 20120403
  Serious: No
  Sender: FDA-Public Use
  Company Number: US-MYLANLABS-2011S1023684

PATIENT
  Sex: Female

DRUGS (4)
  1. TRAZODONE HCL [Suspect]
  2. TRAZODONE HCL [Suspect]
  3. TRAZODONE HCL [Suspect]
  4. TRAZODONE HCL [Suspect]

REACTIONS (4)
  - NIGHTMARE [None]
  - STRESS [None]
  - ADVERSE DRUG REACTION [None]
  - DRUG WITHDRAWAL SYNDROME [None]
